FAERS Safety Report 9438139 (Version 1)
Quarter: 2013Q3

REPORT INFORMATION
  Report Type: Spontaneous
  Country: US (occurrence: US)
  Receive Date: 20130802
  Receipt Date: 20130802
  Transmission Date: 20140515
  Serious: No
  Sender: FDA-Public Use
  Company Number: US-BRISTOL-MYERS SQUIBB COMPANY-16844011

PATIENT
  Age: 84 Year
  Sex: Female
  Weight: 48.52 kg

DRUGS (4)
  1. WARFARIN SODIUM [Suspect]
     Indication: HEART VALVE REPLACEMENT
     Dosage: 1DF=2.5 MG ALTERNATING WITH 5MG
     Route: 048
  2. WARFARIN SODIUM [Suspect]
     Indication: CARDIAC DISORDER
     Dosage: 1DF=2.5 MG ALTERNATING WITH 5MG
     Route: 048
  3. SIMVASTIN [Concomitant]
  4. CALCIUM [Concomitant]

REACTIONS (2)
  - Weight decreased [Unknown]
  - Rash [Unknown]
